FAERS Safety Report 17121840 (Version 1)
Quarter: 2019Q4

REPORT INFORMATION
  Report Type: Report from Study
  Country: BE (occurrence: BE)
  Receive Date: 20191206
  Receipt Date: 20191206
  Transmission Date: 20200122
  Serious: Yes (Other)
  Sender: FDA-Public Use
  Company Number: PHHY2015BE042125

PATIENT
  Age: 33 Year
  Sex: Male

DRUGS (4)
  1. GILENYA [Suspect]
     Active Substance: FINGOLIMOD HYDROCHLORIDE
     Indication: MULTIPLE SCLEROSIS
     Dosage: 0.5 MG, QD
     Route: 048
     Dates: start: 20120719, end: 201507
  2. D-CURE [Concomitant]
     Active Substance: CHOLECALCIFEROL
     Indication: VITAMIN D DEFICIENCY
     Dosage: 25 IU/ML, QW
     Route: 065
     Dates: start: 20140221, end: 20190222
  3. GILENYA [Suspect]
     Active Substance: FINGOLIMOD HYDROCHLORIDE
     Dosage: 0.5 MG, QD
     Route: 048
     Dates: start: 20150917, end: 20180615
  4. FOLIC ACID. [Concomitant]
     Active Substance: FOLIC ACID
     Indication: PROPHYLAXIS
     Dosage: UNK
     Route: 065
     Dates: start: 20150831, end: 20151207

REACTIONS (14)
  - Gastroenteritis [Unknown]
  - Multiple sclerosis relapse [Unknown]
  - Right ventricular dilatation [Not Recovered/Not Resolved]
  - Papule [Unknown]
  - Gastrointestinal haemorrhage [Recovered/Resolved]
  - Burning sensation [Unknown]
  - Road traffic accident [Recovered/Resolved]
  - Headache [Recovered/Resolved]
  - Post-traumatic neck syndrome [Recovered/Resolved]
  - Oedema peripheral [Not Recovered/Not Resolved]
  - Abdominal discomfort [Unknown]
  - Paraesthesia [Unknown]
  - Incision site haemorrhage [Unknown]
  - Rash [Recovered/Resolved]

NARRATIVE: CASE EVENT DATE: 20150201
